FAERS Safety Report 7350693-4 (Version None)
Quarter: 2011Q1

REPORT INFORMATION
  Report Type: 
  Country: None (occurrence: None)
  Receive Date: 20110314
  Receipt Date: 20110309
  Transmission Date: 20110831
  Serious: Yes (Life-Threatening)
  Sender: FDA-Public Use
  Company Number: JP-ASTRAZENECA-2011SE10511

PATIENT
  Age: 69 Year
  Sex: Female
  Weight: 57 kg

DRUGS (6)
  1. CALBLOCK [Concomitant]
     Route: 048
  2. CARDENALIN [Concomitant]
     Route: 048
  3. ARTANE [Concomitant]
     Route: 048
  4. LASIX [Concomitant]
     Route: 048
  5. OMEPRAL [Suspect]
     Indication: REFLUX OESOPHAGITIS
     Route: 048
     Dates: start: 20110112, end: 20110209
  6. MENEST [Concomitant]
     Route: 048

REACTIONS (1)
  - THROMBOCYTOPENIA [None]
